FAERS Safety Report 5075911-7 (Version None)
Quarter: 2006Q3

REPORT INFORMATION
  Report Type: 
  Country: None (occurrence: None)
  Receive Date: 20060807
  Receipt Date: 20060807
  Transmission Date: 20061208
  Serious: Yes (Other)
  Sender: FDA-Public Use
  Company Number: None

PATIENT
  Age: 52 Year
  Sex: Female
  Weight: 68.4932 kg

DRUGS (10)
  1. NOVANTRONE [Suspect]
     Indication: MULTIPLE SCLEROSIS
     Dosage: 14 MG EVERY 3 MONTHS IV DRIP
     Route: 041
     Dates: start: 20010515, end: 20060331
  2. SOLU-MEDROL [Concomitant]
  3. NOVANTRONE [Concomitant]
  4. KYTRIL [Concomitant]
  5. BACLOFEN [Concomitant]
  6. CALCIUM GLUCONATE [Concomitant]
  7. GARLIC OIL CAPSULE [Concomitant]
  8. VITAMIN E [Concomitant]
  9. ADVIL [Concomitant]
  10. M.V.I. [Concomitant]

REACTIONS (2)
  - CARDIAC DISORDER [None]
  - EJECTION FRACTION DECREASED [None]
